FAERS Safety Report 18843232 (Version 1)
Quarter: 2021Q1

REPORT INFORMATION
  Report Type: Report from Study
  Country: US (occurrence: US)
  Receive Date: 20210203
  Receipt Date: 20210203
  Transmission Date: 20210419
  Serious: No
  Sender: FDA-Public Use
  Company Number: US-EXELIXIS-CABO-20027439

PATIENT
  Sex: Male

DRUGS (4)
  1. CABOMETYX [Suspect]
     Active Substance: CABOZANTINIB S-MALATE
     Indication: ACUTE KIDNEY INJURY
     Dosage: 60 MG, QD
     Route: 048
     Dates: start: 20200129
  2. CABOMETYX [Suspect]
     Active Substance: CABOZANTINIB S-MALATE
     Indication: SMALL INTESTINE CARCINOMA
  3. CABOMETYX [Suspect]
     Active Substance: CABOZANTINIB S-MALATE
     Indication: RENAL TUBULAR NECROSIS
     Dosage: 60 MG, QD
     Route: 048
  4. METHOCARBAMOL. [Concomitant]
     Active Substance: METHOCARBAMOL
     Dosage: UNK

REACTIONS (5)
  - Fatigue [Unknown]
  - Procedural pain [Unknown]
  - Pyrexia [Unknown]
  - Pneumonia [Unknown]
  - Off label use [Unknown]
